FAERS Safety Report 12582395 (Version 1)
Quarter: 2016Q3

REPORT INFORMATION
  Report Type: Spontaneous
  Country: US (occurrence: None)
  Receive Date: 20160721
  Receipt Date: 20160721
  Transmission Date: 20161109
  Serious: Yes (Other)
  Sender: FDA-Public Use
  Company Number: None

PATIENT
  Age: 41 Year
  Sex: Female
  Weight: 58.97 kg

DRUGS (4)
  1. DELSYM [Suspect]
     Active Substance: DEXTROMETHORPHAN
     Indication: COUGH
     Dosage: 2 TEASPOON(S) EVERY 12 HOURS TAKEN BY MOUTH
     Route: 048
     Dates: start: 20160719, end: 20160720
  2. KEPPRA [Concomitant]
     Active Substance: LEVETIRACETAM
  3. TYLENOL [Concomitant]
     Active Substance: ACETAMINOPHEN
  4. LAMICTAL [Concomitant]
     Active Substance: LAMOTRIGINE

REACTIONS (2)
  - Hallucination [None]
  - Dizziness [None]

NARRATIVE: CASE EVENT DATE: 20160719
